FAERS Safety Report 11107897 (Version 3)
Quarter: 2015Q2

REPORT INFORMATION
  Report Type: Spontaneous
  Country: US (occurrence: US)
  Receive Date: 20150512
  Receipt Date: 20150605
  Transmission Date: 20150821
  Serious: Yes (Death, Other)
  Sender: FDA-Public Use
  Company Number: US-ASTRAZENECA-2014SE60031

PATIENT
  Age: 20958 Day
  Sex: Female
  Weight: 112 kg

DRUGS (23)
  1. BYETTA [Suspect]
     Active Substance: EXENATIDE
     Dosage: 5MCG/0.02ML PEN INJ
     Route: 065
     Dates: start: 20070612
  2. PROMETHAZINE [Concomitant]
     Active Substance: PROMETHAZINE\PROMETHAZINE HYDROCHLORIDE
     Route: 065
     Dates: start: 20071218
  3. TRIMETHOBENZAMIDE [Concomitant]
     Active Substance: TRIMETHOBENZAMIDE
     Route: 065
     Dates: start: 20071008
  4. QUALAQUIN [Concomitant]
     Active Substance: QUININE SULFATE
     Route: 065
     Dates: start: 20070426
  5. ZEGERID [Concomitant]
     Active Substance: OMEPRAZOLE\SODIUM BICARBONATE
     Route: 065
     Dates: start: 20070818
  6. PLETAL [Concomitant]
     Active Substance: CILOSTAZOL
     Route: 065
  7. PERCOCET [Concomitant]
     Active Substance: ACETAMINOPHEN\OXYCODONE HYDROCHLORIDE
     Route: 065
  8. BYETTA [Suspect]
     Active Substance: EXENATIDE
     Dosage: TWO TIMES A DAY
     Route: 065
     Dates: start: 20051207
  9. BYETTA [Suspect]
     Active Substance: EXENATIDE
     Route: 065
     Dates: start: 20060129, end: 20070715
  10. JANUMET [Suspect]
     Active Substance: METFORMIN HYDROCHLORIDE\SITAGLIPTIN PHOSPHATE
     Dosage: UNK
     Route: 065
     Dates: start: 20070311
  11. HYDROCODONE [Concomitant]
     Active Substance: HYDROCODONE
     Route: 065
  12. DIOVAN [Concomitant]
     Active Substance: VALSARTAN
  13. AMLODIPINE BESYLATE. [Concomitant]
     Active Substance: AMLODIPINE BESYLATE
     Route: 065
     Dates: start: 20070426
  14. JANUMET [Suspect]
     Active Substance: METFORMIN HYDROCHLORIDE\SITAGLIPTIN PHOSPHATE
     Dosage: UNK
     Route: 065
     Dates: start: 20070909, end: 20071103
  15. CELEBREX [Concomitant]
     Active Substance: CELECOXIB
     Route: 065
  16. OXYCODONE [Concomitant]
     Active Substance: OXYCODONE
     Route: 065
     Dates: start: 20070414
  17. NORVASC [Concomitant]
     Active Substance: AMLODIPINE BESYLATE
     Route: 065
  18. BEXTRA [Concomitant]
     Active Substance: VALDECOXIB
     Route: 065
  19. VIOXX [Concomitant]
     Active Substance: ROFECOXIB
     Route: 065
  20. CIPROFLOXACIN HCL [Concomitant]
     Active Substance: CIPROFLOXACIN HYDROCHLORIDE
     Route: 065
     Dates: start: 20070702
  21. ONDANSETRON [Concomitant]
     Active Substance: ONDANSETRON
     Route: 065
     Dates: start: 20071025
  22. NEXIUM [Concomitant]
     Active Substance: ESOMEPRAZOLE MAGNESIUM
     Route: 065
     Dates: start: 20071108
  23. HYDROMORPHONE [Concomitant]
     Active Substance: HYDROMORPHONE
     Route: 065
     Dates: start: 20071218

REACTIONS (2)
  - Pancreatic carcinoma [Fatal]
  - Obstruction gastric [Unknown]

NARRATIVE: CASE EVENT DATE: 20070920
